FAERS Safety Report 7225925-3 (Version None)
Quarter: 2011Q1

REPORT INFORMATION
  Report Type: 
  Country: None (occurrence: None)
  Receive Date: 20110113
  Receipt Date: 20110107
  Transmission Date: 20110831
  Serious: Yes (Other)
  Sender: FDA-Public Use
  Company Number: US-PFIZER INC-2011004969

PATIENT
  Sex: Female
  Weight: 50.79 kg

DRUGS (6)
  1. ZOLOFT [Suspect]
     Dosage: UNK
     Dates: end: 20090101
  2. XANAX [Suspect]
     Dosage: UNK
     Dates: end: 20090101
  3. LYRICA [Suspect]
     Indication: FIBROMYALGIA
  4. CELEBREX [Suspect]
     Dosage: UNK
     Dates: end: 20090101
  5. GABITRIL [Concomitant]
     Dosage: UNK
  6. LYRICA [Suspect]
     Indication: NEUROPATHY PERIPHERAL
     Dosage: UNK
     Dates: end: 20090101

REACTIONS (7)
  - INTERVERTEBRAL DISC DEGENERATION [None]
  - IMMOBILE [None]
  - DEMENTIA ALZHEIMER'S TYPE [None]
  - INTERVERTEBRAL DISC PROTRUSION [None]
  - VENTRICULAR EXTRASYSTOLES [None]
  - CARPAL TUNNEL SYNDROME [None]
  - EXOSTOSIS [None]
